FAERS Safety Report 18515888 (Version 2)
Quarter: 2020Q4

REPORT INFORMATION
  Report Type: Report from Study
  Country: CN (occurrence: CN)
  Receive Date: 20201118
  Receipt Date: 20201203
  Transmission Date: 20210114
  Serious: Yes (Other)
  Sender: FDA-Public Use
  Company Number: CN-ROCHE-2716013

PATIENT
  Age: 58 Year
  Sex: Female
  Weight: 51 kg

DRUGS (3)
  1. PYROTINIB MALEATE. [Suspect]
     Active Substance: PYROTINIB MALEATE
     Indication: BREAST CANCER
     Dosage: MOST RESENT DOSE ON 23/SEP/2020.
     Route: 048
     Dates: start: 20200902, end: 20201104
  2. TRASTUZUMAB. [Suspect]
     Active Substance: TRASTUZUMAB
     Indication: BREAST CANCER
     Dosage: ON 23/SEP/2020 MOST RESENT DOSE 360 MG,
     Route: 041
     Dates: start: 20200902, end: 20201105
  3. DOCETAXEL. [Suspect]
     Active Substance: DOCETAXEL
     Indication: BREAST CANCER
     Dosage: ON 23/SEP/2020 MOST RESENT DOSE 120 MG,
     Route: 041
     Dates: start: 20200902, end: 20201105

REACTIONS (1)
  - Hypotension [Recovered/Resolved]

NARRATIVE: CASE EVENT DATE: 20201106
